FAERS Safety Report 19120995 (Version 2)
Quarter: 2021Q2

REPORT INFORMATION
  Report Type: Spontaneous
  Country: NL (occurrence: NL)
  Receive Date: 20210412
  Receipt Date: 20210419
  Transmission Date: 20210717
  Serious: Yes (Other)
  Sender: FDA-Public Use
  Company Number: NL-BRISTOL-MYERS SQUIBB COMPANY-BMS-2021-032318

PATIENT
  Sex: Female
  Weight: 80 kg

DRUGS (1)
  1. KENACORT [Suspect]
     Active Substance: TRIAMCINOLONE
     Indication: TENDONITIS
     Dosage: 1 DOSAGE FORM
     Route: 065
     Dates: start: 2016

REACTIONS (5)
  - Deafness bilateral [Recovered/Resolved]
  - Intentional product use issue [Unknown]
  - Erythema [Recovered/Resolved]
  - Ocular hyperaemia [Recovered/Resolved]
  - Urticaria [Unknown]
